FAERS Safety Report 4745075-5 (Version None)
Quarter: 2005Q3

REPORT INFORMATION
  Report Type: 
  Country: None (occurrence: None)
  Receive Date: 20050815
  Receipt Date: 20050803
  Transmission Date: 20060218
  Serious: Yes (Other)
  Sender: FDA-Public Use
  Company Number: US-JNJFOC-20050505917

PATIENT
  Age: 72 Year
  Sex: Male
  Weight: 77.11 kg

DRUGS (3)
  1. TOPAMAX [Suspect]
     Indication: DRUG USE FOR UNKNOWN INDICATION
  2. TOPROL-XL [Concomitant]
     Route: 048
  3. TOPROL-XL [Concomitant]
     Indication: HYPERTENSION
     Dosage: (FOR APPROXIMATELY 2.5 YEARS)
     Route: 048

REACTIONS (7)
  - ASTHENIA [None]
  - CARDIAC DISORDER [None]
  - DRUG ADMINISTRATION ERROR [None]
  - NIGHT BLINDNESS [None]
  - PLEURAL EFFUSION [None]
  - VISUAL ACUITY REDUCED [None]
  - WEIGHT DECREASED [None]
